FAERS Safety Report 9828898 (Version 3)
Quarter: 2014Q2

REPORT INFORMATION
  Report Type: Report from Study
  Country: US (occurrence: US)
  Receive Date: 20140118
  Receipt Date: 20140424
  Transmission Date: 20141212
  Serious: Yes (Hospitalization, Other)
  Sender: FDA-Public Use
  Company Number: US-ABBVIE-14P-163-1189328-00

PATIENT
  Age: 40 Year
  Sex: Male
  Weight: 94.43 kg

DRUGS (5)
  1. HUMIRA [Suspect]
     Indication: PSORIASIS
     Route: 058
     Dates: start: 20130306
  2. SYNTHROID [Concomitant]
     Indication: PRODUCT USED FOR UNKNOWN INDICATION
  3. PERCOCET [Concomitant]
     Indication: PRODUCT USED FOR UNKNOWN INDICATION
  4. CYMBALTA [Concomitant]
     Indication: PRODUCT USED FOR UNKNOWN INDICATION
  5. BUTRANS [Concomitant]
     Indication: PRODUCT USED FOR UNKNOWN INDICATION

REACTIONS (29)
  - Obstructive airways disorder [Unknown]
  - Hypoxia [Unknown]
  - Hyperkalaemia [Unknown]
  - Leukocytosis [Unknown]
  - Atelectasis [Unknown]
  - Alveolitis [Unknown]
  - Oxygen saturation decreased [Recovered/Resolved]
  - Pulmonary oedema [Recovered/Resolved]
  - Breath sounds abnormal [Unknown]
  - Osteoarthritis [Unknown]
  - Tachypnoea [Unknown]
  - Respiratory distress [Unknown]
  - White blood cell count increased [Unknown]
  - Dyspnoea [Unknown]
  - Pneumonia [Recovered/Resolved]
  - Chest pain [Unknown]
  - Sputum increased [Unknown]
  - Rales [Unknown]
  - Respiratory tract congestion [Unknown]
  - Sinus congestion [Unknown]
  - Dyspnoea exertional [Unknown]
  - Chills [Unknown]
  - Cough [Unknown]
  - Upper respiratory tract infection [Unknown]
  - Wheezing [Unknown]
  - Dyspnoea [Unknown]
  - Oropharyngeal pain [Unknown]
  - Headache [Unknown]
  - Nausea [Unknown]
